FAERS Safety Report 7209331-3 (Version None)
Quarter: 2011Q1

REPORT INFORMATION
  Report Type: 
  Country: None (occurrence: None)
  Receive Date: 20110104
  Receipt Date: 20101213
  Transmission Date: 20110831
  Serious: No
  Sender: FDA-Public Use
  Company Number: US-B.I. PHARMACEUTICALS,INC./RIDGEFIELD-2010-BP-14303BP

PATIENT
  Age: 74 Year
  Sex: Female

DRUGS (11)
  1. NEURONTIN [Concomitant]
     Indication: ARTHROPATHY
  2. FOSAMAX [Concomitant]
     Indication: OSTEOARTHRITIS
  3. BYSTOLIC [Concomitant]
     Indication: HYPERTENSION
     Dosage: 5 MG
  4. TIKOSYN [Concomitant]
     Indication: ATRIAL FIBRILLATION
  5. CARDURA [Concomitant]
     Indication: HYPERTENSION
  6. COZAAR [Concomitant]
     Indication: HYPERTENSION
     Dosage: 100 MG
  7. LOVAZA [Concomitant]
     Indication: SUPPLEMENTATION THERAPY
  8. PRADAXA [Suspect]
     Indication: ATRIAL FIBRILLATION
     Dosage: 300 MG
     Route: 048
     Dates: start: 20101101
  9. CARDIZEM [Concomitant]
     Indication: HYPERTENSION
     Dosage: 100 MG
  10. FISH OIL [Concomitant]
     Indication: SUPPLEMENTATION THERAPY
  11. CALCIUM [Concomitant]
     Indication: SUPPLEMENTATION THERAPY

REACTIONS (2)
  - CHEST PAIN [None]
  - DYSPEPSIA [None]
